FAERS Safety Report 8616767-2 (Version None)
Quarter: 2012Q3

REPORT INFORMATION
  Report Type: 
  Country: None (occurrence: None)
  Receive Date: 20120823
  Receipt Date: 20120820
  Transmission Date: 20120928
  Serious: Yes (Hospitalization, Other)
  Sender: FDA-Public Use
  Company Number: US-009507513-2012SP010635

PATIENT

DRUGS (2)
  1. DILAUDID [Suspect]
  2. NUVARING [Suspect]
     Indication: CONTRACEPTION
     Dates: start: 20100210, end: 20100301

REACTIONS (11)
  - PULMONARY EMBOLISM [None]
  - MUSCLE SPASMS [None]
  - HYPERCOAGULATION [None]
  - MENINGITIS VIRAL [None]
  - ANTIPHOSPHOLIPID ANTIBODIES POSITIVE [None]
  - PHARYNGITIS STREPTOCOCCAL [None]
  - VOMITING [None]
  - EAR PAIN [None]
  - METABOLIC ACIDOSIS [None]
  - NAUSEA [None]
  - PULMONARY INFARCTION [None]
